FAERS Safety Report 6035909-9 (Version None)
Quarter: 2009Q1

REPORT INFORMATION
  Report Type: 
  Country: None (occurrence: None)
  Receive Date: 20090113
  Receipt Date: 20090108
  Transmission Date: 20090719
  Serious: Yes (Other)
  Sender: FDA-Public Use
  Company Number: A0754434A

PATIENT
  Age: 51 Year
  Sex: Female
  Weight: 145.5 kg

DRUGS (6)
  1. ADVAIR DISKUS 250/50 [Suspect]
     Indication: ASTHMA
     Dosage: 1PUFF TWICE PER DAY
     Route: 055
     Dates: start: 20050101, end: 20081103
  2. MONOPRIL [Concomitant]
     Indication: DRUG USE FOR UNKNOWN INDICATION
     Route: 065
  3. LANTUS [Concomitant]
     Indication: DRUG USE FOR UNKNOWN INDICATION
     Route: 065
  4. HUMALOG [Concomitant]
     Indication: DRUG USE FOR UNKNOWN INDICATION
     Route: 065
  5. ALLEGRA [Concomitant]
     Indication: DRUG USE FOR UNKNOWN INDICATION
     Route: 048
  6. NASACORT [Concomitant]
     Indication: DRUG USE FOR UNKNOWN INDICATION
     Route: 045

REACTIONS (10)
  - ASTHENOPIA [None]
  - CANDIDIASIS [None]
  - CORNEAL ABRASION [None]
  - DRY EYE [None]
  - EMOTIONAL DISTRESS [None]
  - EYE PAIN [None]
  - EYE PENETRATION [None]
  - EYE PRURITUS [None]
  - FEELING HOT [None]
  - NAUSEA [None]
